FAERS Safety Report 9951723 (Version 1)
Quarter: 2014Q1

REPORT INFORMATION
  Report Type: Report from Study
  Country: US (occurrence: US)
  Receive Date: 20140304
  Receipt Date: 20140304
  Transmission Date: 20141002
  Serious: No
  Sender: FDA-Public Use
  Company Number: US-ABBVIE-13P-163-1072104-00

PATIENT
  Age: 63 Year
  Sex: Female

DRUGS (12)
  1. HUMIRA [Suspect]
     Indication: PSORIASIS
     Dosage: LOADING DOSE
     Dates: start: 20130319, end: 20130319
  2. HUMIRA [Suspect]
     Dates: start: 20130327
  3. METFORMIN [Concomitant]
     Indication: DIABETES MELLITUS
  4. METFORMIN [Concomitant]
     Dosage: AT NOON
  5. JANUVIA [Concomitant]
     Indication: DIABETES MELLITUS
  6. AVAPRO [Concomitant]
     Indication: HYPERTENSION
  7. GENERIC NORVASC [Concomitant]
     Indication: PRODUCT USED FOR UNKNOWN INDICATION
  8. SYNTHROID [Concomitant]
     Indication: PRODUCT USED FOR UNKNOWN INDICATION
     Dosage: SUNDAY THROUGH FRIDAY, 1/2 TABLET ON SUNDAY
  9. PRAVASTATIN [Concomitant]
     Indication: BLOOD CHOLESTEROL
     Dosage: AT BEDTIME
  10. VITAMIN B12 (CYANOCOBALAMIN AND ANALOGUES) [Concomitant]
     Indication: RED BLOOD CELL COUNT ABNORMAL
     Dosage: MONTHLY
  11. VITAMIN B12 (CYANOCOBALAMIN AND ANALOGUES) [Concomitant]
     Indication: ANAEMIA
  12. CLOBETASOL [Concomitant]
     Indication: PSORIASIS
     Route: 061

REACTIONS (2)
  - Feeling jittery [Not Recovered/Not Resolved]
  - Hypertension [Not Recovered/Not Resolved]
